FAERS Safety Report 7445519-4 (Version None)
Quarter: 2011Q2

REPORT INFORMATION
  Report Type: 
  Country: None (occurrence: None)
  Receive Date: 20110429
  Receipt Date: 20110427
  Transmission Date: 20111010
  Serious: Yes (Hospitalization)
  Sender: FDA-Public Use
  Company Number: US-ABBOTT-11P-163-0703447-00

PATIENT
  Sex: Male
  Weight: 83.99 kg

DRUGS (2)
  1. HUMIRA [Suspect]
     Indication: CROHN'S DISEASE
     Dates: start: 20080828, end: 20100501
  2. HUMIRA [Suspect]
     Dates: start: 20110401

REACTIONS (18)
  - RIB FRACTURE [None]
  - GASTROENTERITIS [None]
  - SMALL INTESTINE ULCER [None]
  - ARTHRALGIA [None]
  - CROHN'S DISEASE [None]
  - GASTROINTESTINAL INFLAMMATION [None]
  - ABDOMINAL PAIN [None]
  - GASTROINTESTINAL INFECTION [None]
  - INAPPROPRIATE SCHEDULE OF DRUG ADMINISTRATION [None]
  - NAUSEA [None]
  - CONSTIPATION [None]
  - VOMITING [None]
  - WEIGHT DECREASED [None]
  - ABDOMINAL DISTENSION [None]
  - DECREASED APPETITE [None]
  - MUSCLE SPASMS [None]
  - ANAL ULCER [None]
  - FALL [None]
